FAERS Safety Report 20543750 (Version 2)
Quarter: 2022Q2

REPORT INFORMATION
  Report Type: Report from Study
  Country: CA (occurrence: None)
  Receive Date: 20220303
  Receipt Date: 20220412
  Transmission Date: 20220721
  Serious: Yes (Other)
  Sender: FDA-Public Use
  Company Number: CA-Merck Healthcare KGaA-9302478

PATIENT
  Sex: Female

DRUGS (1)
  1. REBIF [Suspect]
     Active Substance: INTERFERON BETA-1A
     Indication: Product used for unknown indication
     Dates: start: 19990101

REACTIONS (5)
  - Hallucination [Unknown]
  - Feeling cold [Unknown]
  - Tremor [Unknown]
  - Speech disorder [Unknown]
  - Influenza like illness [Unknown]
